FAERS Safety Report 4435657-2 (Version None)
Quarter: 2004Q3

REPORT INFORMATION
  Report Type: 
  Country: None (occurrence: None)
  Receive Date: 20040726
  Receipt Date: 20040331
  Transmission Date: 20050211
  Serious: No
  Sender: FDA-Public Use
  Company Number: US_000133760

PATIENT
  Age: 74 Year
  Sex: Female
  Weight: 52 kg

DRUGS (4)
  1. EVISTA [Suspect]
     Indication: OSTEOPOROSIS
     Dosage: 60 MG/1 DAY
     Dates: start: 19991201
  2. FORTEO [Suspect]
     Indication: OSTEOPOROSIS
     Dates: start: 20040310, end: 20040323
  3. HYDROCHLOROTHIAZIDE [Concomitant]
  4. SYNTHROID [Concomitant]

REACTIONS (5)
  - ABDOMINAL PAIN LOWER [None]
  - ARTHRITIS [None]
  - FLATULENCE [None]
  - FREQUENT BOWEL MOVEMENTS [None]
  - MUSCLE CRAMP [None]
